FAERS Safety Report 12776206 (Version 1)
Quarter: 2016Q3

REPORT INFORMATION
  Report Type: Spontaneous
  Country: AU (occurrence: AU)
  Receive Date: 20160923
  Receipt Date: 20160923
  Transmission Date: 20161109
  Serious: Yes (Hospitalization)
  Sender: FDA-Public Use
  Company Number: AU-SA-2016SA171183

PATIENT
  Age: 77 Year
  Sex: Male

DRUGS (14)
  1. ARANESP [Concomitant]
     Active Substance: DARBEPOETIN ALFA
  2. METAMUCIL [Concomitant]
     Active Substance: PLANTAGO SEED
  3. NITROLINGUAL [Concomitant]
     Active Substance: NITROGLYCERIN
  4. AMIODARONE [Concomitant]
     Active Substance: AMIODARONE
  5. GLICLAZIDE [Concomitant]
     Active Substance: GLICLAZIDE
  6. IMDUR [Concomitant]
     Active Substance: ISOSORBIDE MONONITRATE
  7. PARACETAMOL [Concomitant]
     Active Substance: ACETAMINOPHEN
  8. CAL-SUP [Concomitant]
  9. GEMFIBROZIL. [Concomitant]
     Active Substance: GEMFIBROZIL
  10. ATORVASTATIN [Concomitant]
     Active Substance: ATORVASTATIN
  11. METOPROLOL. [Concomitant]
     Active Substance: METOPROLOL
  12. CLOPIDOGREL BISULFATE. [Suspect]
     Active Substance: CLOPIDOGREL BISULFATE
     Route: 065
  13. ALLOPURINOL. [Concomitant]
     Active Substance: ALLOPURINOL
  14. ASPIRIN. [Suspect]
     Active Substance: ASPIRIN
     Route: 065

REACTIONS (2)
  - Rectal haemorrhage [Recovered/Resolved]
  - Concomitant disease progression [Recovered/Resolved]

NARRATIVE: CASE EVENT DATE: 20160614
